FAERS Safety Report 10777231 (Version 2)
Quarter: 2015Q1

REPORT INFORMATION
  Report Type: Report from Study
  Country: CO (occurrence: CO)
  Receive Date: 20150209
  Receipt Date: 20150219
  Transmission Date: 20150721
  Serious: Yes (Other)
  Sender: FDA-Public Use
  Company Number: CO-BAYER-2015-013281

PATIENT
  Age: 25 Year
  Sex: Male

DRUGS (1)
  1. KOGENATE [Suspect]
     Active Substance: ANTIHEMOPHILIC FACTOR, HUMAN RECOMBINANT
     Indication: CONGENITAL ABNORMALITY PROPHYLAXIS
     Dosage: 1300 IU, TIW
     Route: 042
     Dates: start: 20081201

REACTIONS (2)
  - Cold sweat [Not Recovered/Not Resolved]
  - Unevaluable event [Not Recovered/Not Resolved]

NARRATIVE: CASE EVENT DATE: 20141201
